FAERS Safety Report 7458323-8 (Version None)
Quarter: 2011Q2

REPORT INFORMATION
  Report Type: 
  Country: None (occurrence: None)
  Receive Date: 20110504
  Receipt Date: 20110428
  Transmission Date: 20111010
  Serious: Yes (Other)
  Sender: FDA-Public Use
  Company Number: SE-B.I. PHARMACEUTICALS,INC./RIDGEFIELD-2011-SW-00142SW

PATIENT
  Sex: Female

DRUGS (10)
  1. IDEOS [Concomitant]
     Dosage: STRENGTH: 500MG/400IE; DAILY DOSE 500MG/400IE X 2
  2. KALEORID DEPOT [Concomitant]
     Dosage: 1500 UNK
  3. BURINEX [Concomitant]
     Dosage: 1 MG
  4. LEVOTHYROXINE SODIUM [Concomitant]
     Dosage: 125 MCG
  5. CITALOPRAM HYDROBROMIDE [Concomitant]
     Dosage: 20 MG
  6. PRADAXA [Suspect]
     Indication: THROMBOSIS PROPHYLAXIS
     Dosage: 220 MG
  7. ENALAPRIL [Concomitant]
  8. PREDNISOLONE [Concomitant]
     Dosage: 5 MG
  9. COZAAR [Concomitant]
     Dosage: 12.5 UNK
  10. FOSAMAX [Concomitant]

REACTIONS (1)
  - DEEP VEIN THROMBOSIS [None]
